FAERS Safety Report 9801247 (Version 1)
Quarter: 2014Q1

REPORT INFORMATION
  Report Type: Spontaneous
  Country: FR (occurrence: FR)
  Receive Date: 20140107
  Receipt Date: 20140107
  Transmission Date: 20141002
  Serious: Yes (Hospitalization, Other)
  Sender: FDA-Public Use
  Company Number: FR-CELGENEUS-056-21880-13124905

PATIENT
  Age: 60 Year
  Sex: Male

DRUGS (2)
  1. REVLIMID [Suspect]
     Indication: MYELOFIBROSIS
     Route: 048
     Dates: start: 201004
  2. REVLIMID [Suspect]
     Route: 048

REACTIONS (3)
  - Organising pneumonia [Unknown]
  - Acute respiratory distress syndrome [Unknown]
  - Pancytopenia [Unknown]
